FAERS Safety Report 4777000-5 (Version None)
Quarter: 2005Q3

REPORT INFORMATION
  Report Type: 
  Country: None (occurrence: None)
  Receive Date: 20050923
  Receipt Date: 20050922
  Transmission Date: 20060218
  Serious: Yes (Hospitalization)
  Sender: FDA-Public Use
  Company Number: US-GLAXOSMITHKLINE-A0575454A

PATIENT
  Age: 46 Year
  Sex: Male

DRUGS (3)
  1. EPZICOM [Suspect]
     Indication: HIV INFECTION
     Dosage: 300MG PER DAY
     Route: 048
     Dates: start: 20050901, end: 20050922
  2. SUSTIVA [Concomitant]
  3. BACTRIM DS [Concomitant]

REACTIONS (9)
  - BLOOD CREATININE DECREASED [None]
  - CHEST PAIN [None]
  - DYSPNOEA [None]
  - HYPERSENSITIVITY [None]
  - LIVER FUNCTION TEST ABNORMAL [None]
  - MYALGIA [None]
  - PRURITUS [None]
  - PYREXIA [None]
  - URINE OUTPUT DECREASED [None]
